FAERS Safety Report 5281684-5 (Version None)
Quarter: 2007Q1

REPORT INFORMATION
  Report Type: 
  Country: None (occurrence: None)
  Receive Date: 20070330
  Receipt Date: 20070326
  Transmission Date: 20070707
  Serious: Yes (Other)
  Sender: FDA-Public Use
  Company Number: US-JNJFOC-20070305247

PATIENT
  Sex: Male

DRUGS (1)
  1. REOPRO [Suspect]
     Indication: ACUTE MYOCARDIAL INFARCTION
     Route: 040

REACTIONS (2)
  - CORONARY ARTERY REOCCLUSION [None]
  - WRONG TECHNIQUE IN DRUG USAGE PROCESS [None]
